FAERS Safety Report 8105562-9 (Version None)
Quarter: 2012Q1

REPORT INFORMATION
  Report Type: 
  Country: None (occurrence: None)
  Receive Date: 20120201
  Receipt Date: 20120126
  Transmission Date: 20120608
  Serious: Yes (Hospitalization, Disabling)
  Sender: FDA-Public Use
  Company Number: US-B.I. PHARMACEUTICALS,INC./RIDGEFIELD-2012-BP-01865PF

PATIENT
  Sex: Female
  Weight: 63.49 kg

DRUGS (7)
  1. XANAX [Suspect]
     Indication: DEPRESSION
     Dosage: 100 MG
     Dates: start: 20080101, end: 20100126
  2. SPIRIVA [Suspect]
     Indication: CHRONIC OBSTRUCTIVE PULMONARY DISEASE
  3. SPIRIVA [Suspect]
     Indication: EMPHYSEMA
     Dates: start: 20080101, end: 20100101
  4. EFFEXOR XR [Suspect]
     Indication: DEPRESSION
     Dosage: 37 MG
  5. XANAX [Suspect]
     Indication: ANXIETY
  6. EFFEXOR XR [Suspect]
     Indication: ANXIETY
     Dosage: 75 MG
     Dates: end: 20120101
  7. ALBUTEROL [Concomitant]

REACTIONS (5)
  - APPARENT DEATH [None]
  - THROAT CANCER [None]
  - DYSPHAGIA [None]
  - DYSPNOEA [None]
  - GASTRIC DISORDER [None]
